FAERS Safety Report 4281490-4 (Version None)
Quarter: 2004Q1

REPORT INFORMATION
  Report Type: 
  Country: None (occurrence: None)
  Receive Date: 20040112
  Receipt Date: 20030429
  Transmission Date: 20041129
  Serious: Yes (Life-Threatening)
  Sender: FDA-Public Use
  Company Number: NSADSS2001028832

PATIENT
  Age: 60 Year
  Sex: Female

DRUGS (2)
  1. REOPRO [Suspect]
     Indication: DRUG USE FOR UNKNOWN INDICATION
     Dosage: 17 ML, INTRAVENOUS DRIP
     Route: 041
  2. REOPRO [Suspect]
     Indication: DRUG USE FOR UNKNOWN INDICATION
     Dosage: 10.8 ML, INTRAVENOUS BOLUS
     Route: 040

REACTIONS (1)
  - RETROPERITONEAL HAEMORRHAGE [None]
